FAERS Safety Report 14616995 (Version 1)
Quarter: 2018Q1

REPORT INFORMATION
  Report Type: Report from Study
  Country: BR (occurrence: BR)
  Receive Date: 20180309
  Receipt Date: 20180309
  Transmission Date: 20180509
  Serious: Yes (Other)
  Sender: FDA-Public Use
  Company Number: PHHY2016BR167944

PATIENT
  Age: 35 Year
  Sex: Female
  Weight: 61 kg

DRUGS (13)
  1. DIAZEPAM. [Concomitant]
     Active Substance: DIAZEPAM
     Indication: INSOMNIA
     Dosage: 2 DF, UNK
     Route: 048
     Dates: start: 2015
  2. ZOLPIDEM [Concomitant]
     Active Substance: ZOLPIDEM\ZOLPIDEM TARTRATE
     Indication: INSOMNIA
     Dosage: UNK UNK, QD (EVERY EVENING)
     Route: 065
     Dates: start: 20170206
  3. CLOMIPRAMINE [Concomitant]
     Active Substance: CLOMIPRAMINE
     Indication: DEPRESSION
  4. DORFLEX [Concomitant]
     Active Substance: CAFFEINE\DIPYRONE\ORPHENADRINE
     Indication: HEADACHE
     Dosage: 50 MG, PRN
     Route: 048
  5. QUETIAPINA [Concomitant]
     Active Substance: QUETIAPINE
     Indication: DEPRESSION
  6. CLOMIPRAMINE [Concomitant]
     Active Substance: CLOMIPRAMINE
     Indication: ANXIETY
     Dosage: 2 DF, QD (1 YEAR AND A HALF AGO STARTED)
     Route: 048
  7. GILENYA [Suspect]
     Active Substance: FINGOLIMOD HYDROCHLORIDE
     Indication: MULTIPLE SCLEROSIS
     Dosage: 0.5 MG, QD
     Route: 048
     Dates: start: 20150530
  8. MELATONINA [Concomitant]
     Indication: INSOMNIA
     Dosage: 3 MG, QD
     Route: 048
     Dates: start: 201611
  9. RIVOTRIL [Concomitant]
     Active Substance: CLONAZEPAM
     Indication: INSOMNIA
     Dosage: 2 DF, QD (EVERY EVENING)
     Route: 048
     Dates: start: 2012
  10. SERTRALINE [Concomitant]
     Active Substance: SERTRALINE HYDROCHLORIDE
     Dosage: 2 DF, QD
     Route: 065
  11. QUETIAPINA [Concomitant]
     Active Substance: QUETIAPINE
     Indication: INSOMNIA
     Dosage: UNK
     Route: 065
  12. NAPROXENO [Concomitant]
     Active Substance: NAPROXEN
     Indication: HEADACHE
     Dosage: 500 MG, PRN
     Route: 048
  13. SERTRALINE [Concomitant]
     Active Substance: SERTRALINE HYDROCHLORIDE
     Indication: DEPRESSION
     Dosage: 1 DF, QD
     Route: 065

REACTIONS (4)
  - Quadriparesis [Not Recovered/Not Resolved]
  - Fall [Unknown]
  - Hemiparesis [Not Recovered/Not Resolved]
  - Memory impairment [Recovering/Resolving]

NARRATIVE: CASE EVENT DATE: 201612
